FAERS Safety Report 8495939-4 (Version None)
Quarter: 2012Q3

REPORT INFORMATION
  Report Type: 
  Country: None (occurrence: None)
  Receive Date: 20120709
  Receipt Date: 20120627
  Transmission Date: 20120928
  Serious: Yes (Hospitalization)
  Sender: FDA-Public Use
  Company Number: US-GLAXOSMITHKLINE-A0977772A

PATIENT
  Age: 52 Year
  Sex: Female

DRUGS (1)
  1. FLOLAN [Suspect]
     Indication: PRODUCT USED FOR UNKNOWN INDICATION
     Dosage: 13.5NGKM CONTINUOUS
     Route: 065
     Dates: start: 20100330

REACTIONS (6)
  - APPLICATION SITE DISCHARGE [None]
  - INFUSION SITE ERYTHEMA [None]
  - FLUSHING [None]
  - HEADACHE [None]
  - INFUSION SITE PAIN [None]
  - INFUSION SITE SWELLING [None]
